FAERS Safety Report 5238497-X (Version None)
Quarter: 2007Q1

REPORT INFORMATION
  Report Type: 
  Country: None (occurrence: None)
  Receive Date: 20070215
  Receipt Date: 20070209
  Transmission Date: 20070707
  Serious: Yes (Death, Other)
  Sender: FDA-Public Use
  Company Number: HQWYE038028APR06

PATIENT
  Age: 78 Year
  Sex: Male
  Weight: 56 kg

DRUGS (4)
  1. MYLOTARG [Suspect]
     Indication: ACUTE MYELOID LEUKAEMIA
     Dosage: A SINGLE 9 MG/M^2 DOSE
     Route: 041
     Dates: start: 20060224, end: 20060224
  2. MYLOTARG [Suspect]
     Dosage: A SINGLE 9 MG/M^2 DOSE
     Route: 041
     Dates: start: 20060310, end: 20060310
  3. DIFLUCAN [Concomitant]
     Indication: PROPHYLAXIS
     Route: 048
     Dates: start: 20060224, end: 20060312
  4. DIAMOX [Suspect]
     Indication: PROPHYLAXIS
     Route: 042
     Dates: start: 20060307, end: 20060315

REACTIONS (5)
  - ANAEMIA [None]
  - HYPOKALAEMIA [None]
  - NEUTROPHIL COUNT DECREASED [None]
  - PLATELET COUNT DECREASED [None]
  - PNEUMONIA [None]
